FAERS Safety Report 8162606-6 (Version None)
Quarter: 2012Q1

REPORT INFORMATION
  Report Type: 
  Country: None (occurrence: None)
  Receive Date: 20120224
  Receipt Date: 20120215
  Transmission Date: 20120608
  Serious: Yes (Other)
  Sender: FDA-Public Use
  Company Number: FR-JNJFOC-20120211567

PATIENT
  Age: 73 Year
  Sex: Female

DRUGS (18)
  1. DOXORUBICIN HCL [Suspect]
     Indication: BREAST CANCER METASTATIC
     Route: 042
  2. DOXORUBICIN HCL [Suspect]
     Route: 042
  3. GEMCITABINE [Suspect]
     Indication: BREAST CANCER METASTATIC
     Route: 042
  4. DOXORUBICIN HCL [Suspect]
     Route: 042
  5. DOXORUBICIN HCL [Suspect]
     Route: 042
  6. GEMCITABINE [Suspect]
     Route: 042
  7. GEMCITABINE [Suspect]
     Route: 042
  8. DOXORUBICIN HCL [Suspect]
     Route: 042
  9. GEMCITABINE [Suspect]
     Route: 042
  10. DOXORUBICIN HCL [Suspect]
     Route: 042
  11. DOXORUBICIN HCL [Suspect]
     Route: 042
  12. GEMCITABINE [Suspect]
     Route: 042
  13. GEMCITABINE [Suspect]
     Route: 042
  14. GEMCITABINE [Suspect]
     Route: 042
  15. DOXORUBICIN HCL [Suspect]
     Route: 042
  16. GEMCITABINE [Suspect]
     Route: 042
  17. DOXORUBICIN HCL [Suspect]
     Route: 042
  18. GEMCITABINE [Suspect]
     Route: 042

REACTIONS (1)
  - ARRHYTHMIA [None]
